FAERS Safety Report 6373871-X (Version None)
Quarter: 2009Q3

REPORT INFORMATION
  Report Type: 
  Country: None (occurrence: None)
  Receive Date: 20090924
  Receipt Date: 20090511
  Transmission Date: 20100115
  Serious: No
  Sender: FDA-Public Use
  Company Number: US-ASTRAZENECA-2009UW12127

PATIENT
  Age: 95 Year
  Sex: Female

DRUGS (4)
  1. SEROQUEL [Suspect]
     Route: 048
  2. EFFEXOR [Concomitant]
  3. SINEMET [Concomitant]
  4. ARICEPT [Concomitant]

REACTIONS (2)
  - EAR PAIN [None]
  - HALLUCINATION [None]
